FAERS Safety Report 6152588-0 (Version None)
Quarter: 2009Q2

REPORT INFORMATION
  Report Type: 
  Country: None (occurrence: None)
  Receive Date: 20090413
  Receipt Date: 20090408
  Transmission Date: 20091009
  Serious: Yes (Hospitalization)
  Sender: FDA-Public Use
  Company Number: FR-BRISTOL-MYERS SQUIBB COMPANY-14581326

PATIENT
  Age: 75 Year
  Sex: Male

DRUGS (11)
  1. COAPROVEL [Suspect]
     Route: 048
  2. DETENSIEL [Suspect]
  3. AMLODIPINE BESYLATE [Suspect]
  4. EUPRESSYL [Suspect]
  5. CORVASAL [Suspect]
  6. NITRODERM [Suspect]
  7. HYPERIUM [Suspect]
  8. LASIX [Suspect]
  9. INIPOMP [Concomitant]
  10. KARDEGIC [Concomitant]
  11. INSULIN [Concomitant]

REACTIONS (3)
  - FALL [None]
  - FEMUR FRACTURE [None]
  - ORTHOSTATIC HYPOTENSION [None]
